FAERS Safety Report 7768969-5 (Version None)
Quarter: 2011Q3

REPORT INFORMATION
  Report Type: 
  Country: None (occurrence: None)
  Receive Date: 20110922
  Receipt Date: 20101124
  Transmission Date: 20111222
  Serious: Yes (Hospitalization)
  Sender: FDA-Public Use
  Company Number: US-ASTRAZENECA-2010SE56342

PATIENT
  Age: 18 Year
  Sex: Male
  Weight: 104.3 kg

DRUGS (2)
  1. SEROQUEL [Suspect]
     Indication: BIPOLAR DISORDER
     Route: 048
     Dates: start: 20080805
  2. LAMOTRIGINE [Concomitant]
     Indication: BIPOLAR DISORDER
     Route: 048

REACTIONS (1)
  - EXTRAPYRAMIDAL DISORDER [None]
